FAERS Safety Report 21227326 (Version 1)
Quarter: 2022Q3

REPORT INFORMATION
  Report Type: Report from Study
  Country: CA (occurrence: CA)
  Receive Date: 20220818
  Receipt Date: 20220818
  Transmission Date: 20221027
  Serious: Yes (Hospitalization)
  Sender: FDA-Public Use
  Company Number: CA-JNJFOC-20220822883

PATIENT
  Age: 57 Year
  Sex: Female

DRUGS (2)
  1. SIMPONI [Suspect]
     Active Substance: GOLIMUMAB
     Indication: Rheumatoid arthritis
     Route: 058
     Dates: start: 20120220
  2. SIMPONI [Suspect]
     Active Substance: GOLIMUMAB

REACTIONS (1)
  - Plasma cell myeloma [Not Recovered/Not Resolved]

NARRATIVE: CASE EVENT DATE: 20220101
